FAERS Safety Report 10023825 (Version 1)
Quarter: 2014Q1

REPORT INFORMATION
  Report Type: Spontaneous
  Country: US (occurrence: None)
  Receive Date: 20140319
  Receipt Date: 20140319
  Transmission Date: 20141002
  Serious: Yes (Hospitalization)
  Sender: FDA-Public Use
  Company Number: None

PATIENT
  Age: 77 Year
  Sex: Female
  Weight: 88.45 kg

DRUGS (9)
  1. OMEPRAZOLE [Suspect]
     Indication: GASTROOESOPHAGEAL REFLUX DISEASE
     Route: 048
     Dates: start: 20131228, end: 20140130
  2. LANSOPRAZOLE [Suspect]
     Indication: GASTROOESOPHAGEAL REFLUX DISEASE
     Route: 048
  3. NEXIUM [Suspect]
     Indication: GASTROOESOPHAGEAL REFLUX DISEASE
     Route: 048
  4. LANTUS SOLOSTAR [Concomitant]
  5. AVALIDE [Concomitant]
  6. MULTI VITAMIN [Concomitant]
  7. CALCIUM [Concomitant]
  8. VIT C [Concomitant]
  9. INSULIN [Concomitant]

REACTIONS (12)
  - Gastritis [None]
  - Chest pain [None]
  - Headache [None]
  - Nausea [None]
  - Myalgia [None]
  - Muscle spasms [None]
  - Swelling face [None]
  - Rash [None]
  - Dyspnoea [None]
  - Convulsion [None]
  - Constipation [None]
  - Abdominal pain [None]
